FAERS Safety Report 22008586 (Version 5)
Quarter: 2023Q1

REPORT INFORMATION
  Report Type: Report from Study
  Country: JP (occurrence: None)
  Receive Date: 20230219
  Receipt Date: 20230330
  Transmission Date: 20230418
  Serious: Yes (Hospitalization)
  Sender: FDA-Public Use
  Company Number: JP-ROCHE-3283892

PATIENT
  Age: 71 Year
  Sex: Male
  Weight: 60.6 kg

DRUGS (44)
  1. MOSUNETUZUMAB [Suspect]
     Active Substance: MOSUNETUZUMAB
     Indication: Non-Hodgkin^s lymphoma unspecified histology indolent
     Dosage: DOSE LAST STUDY DRUG MOSUNETUZUMAB ADMIN PRIOR AE/SAE WAS 30 MG?ON 17/JAN/2023, MOST RECENT DOSE OF
     Route: 042
     Dates: start: 20220829
  2. LENALIDOMIDE [Suspect]
     Active Substance: LENALIDOMIDE
     Indication: Non-Hodgkin^s lymphoma unspecified histology indolent
     Dosage: DOSE LAST STUDY DRUG LENALIDOMIDE ADMIN PRIOR AE/SAE WAS 15 MG?ON 06/FEB/2023, MOST RECENT DOSE OF S
     Route: 048
     Dates: start: 20220920
  3. SANSONINTO [Concomitant]
     Indication: Insomnia
     Route: 048
     Dates: start: 2021
  4. PANCRELIPASE [Concomitant]
     Active Substance: PANCRELIPASE
     Route: 048
     Dates: start: 2018, end: 20230208
  5. PANCRELIPASE [Concomitant]
     Active Substance: PANCRELIPASE
     Route: 048
     Dates: start: 20230211
  6. CAMOSTAT MESYLATE [Concomitant]
     Active Substance: CAMOSTAT MESYLATE
     Route: 048
     Dates: start: 2018
  7. URSO [Concomitant]
     Active Substance: URSODIOL
     Route: 048
     Dates: start: 2018, end: 20230208
  8. URSO [Concomitant]
     Active Substance: URSODIOL
     Route: 048
     Dates: start: 20230211
  9. RABEPRAZOLE [Concomitant]
     Active Substance: RABEPRAZOLE
     Route: 048
     Dates: start: 2018
  10. ZOLPIDEM TARTRATE [Concomitant]
     Active Substance: ZOLPIDEM TARTRATE
     Indication: Insomnia
     Route: 048
     Dates: start: 2012
  11. MAGNESIUM OXIDE [Concomitant]
     Active Substance: MAGNESIUM OXIDE
     Indication: Constipation
     Route: 048
     Dates: start: 2018
  12. ZINC [Concomitant]
     Active Substance: ZINC
     Indication: Hypozincaemia
     Route: 048
     Dates: start: 2021, end: 20230208
  13. ZINC [Concomitant]
     Active Substance: ZINC
     Route: 048
     Dates: start: 20230211
  14. ACETAMINOPHEN [Concomitant]
     Active Substance: ACETAMINOPHEN
     Route: 048
     Dates: start: 20220829
  15. POLARAMINE [Concomitant]
     Active Substance: DEXCHLORPHENIRAMINE MALEATE
     Route: 048
     Dates: start: 20220829
  16. SENNOSIDES [Concomitant]
     Active Substance: SENNOSIDES
     Indication: Constipation
     Route: 048
     Dates: start: 20220906
  17. CLOBETASOL [Concomitant]
     Active Substance: CLOBETASOL
     Route: 061
     Dates: start: 20220914
  18. CAMOSTAT MESYLATE [Concomitant]
     Active Substance: CAMOSTAT MESYLATE
     Route: 048
     Dates: start: 20220917, end: 20230208
  19. RABEPRAZOLE SODIUM [Concomitant]
     Active Substance: RABEPRAZOLE SODIUM
     Route: 048
     Dates: start: 20220917, end: 20230208
  20. ASPIRIN [Concomitant]
     Active Substance: ASPIRIN
     Route: 048
     Dates: start: 20220920, end: 20230208
  21. OLOPATADINE HYDROCHLORIDE [Concomitant]
     Active Substance: OLOPATADINE HYDROCHLORIDE
     Indication: Pruritus
     Route: 048
     Dates: start: 20220921, end: 20230208
  22. AZ COMBINATION [Concomitant]
     Route: 061
     Dates: start: 20220910
  23. SULFAMETHOXAZOLE\TRIMETHOPRIM [Concomitant]
     Active Substance: SULFAMETHOXAZOLE\TRIMETHOPRIM
     Route: 048
     Dates: start: 20221101, end: 20230208
  24. HISINALC [Concomitant]
     Route: 042
     Dates: start: 20230209, end: 20230209
  25. HISINALC [Concomitant]
     Route: 042
     Dates: start: 20230212, end: 20230213
  26. HISINALC [Concomitant]
     Route: 042
     Dates: start: 20230210, end: 20230210
  27. HISINALC [Concomitant]
     Route: 042
     Dates: start: 20230211, end: 20230211
  28. RABEPRAZOLE SODIUM [Concomitant]
     Active Substance: RABEPRAZOLE SODIUM
     Route: 048
     Dates: start: 20220917, end: 20230208
  29. RABEPRAZOLE SODIUM [Concomitant]
     Active Substance: RABEPRAZOLE SODIUM
     Route: 048
     Dates: start: 20230211
  30. VITAMEDIN (JAPAN) [Concomitant]
     Route: 042
     Dates: start: 20230209, end: 20230213
  31. VITAMIN C [Concomitant]
     Active Substance: ASCORBIC ACID
     Route: 042
     Dates: start: 20230209, end: 20230213
  32. OMEPRAZOLE [Concomitant]
     Active Substance: OMEPRAZOLE
     Indication: Prophylaxis
     Route: 042
     Dates: start: 20230209, end: 20230209
  33. OMEPRAZOLE [Concomitant]
     Active Substance: OMEPRAZOLE
     Route: 042
     Dates: start: 20230210, end: 20230210
  34. BROMHEXINE HYDROCHLORIDE [Concomitant]
     Active Substance: BROMHEXINE HYDROCHLORIDE
     Route: 042
     Dates: start: 20230209, end: 20230209
  35. BROMHEXINE HYDROCHLORIDE [Concomitant]
     Active Substance: BROMHEXINE HYDROCHLORIDE
     Route: 042
     Dates: start: 20230210, end: 20230212
  36. BROMHEXINE HYDROCHLORIDE [Concomitant]
     Active Substance: BROMHEXINE HYDROCHLORIDE
     Route: 042
     Dates: start: 20230213, end: 20230213
  37. BAKFOSE [Concomitant]
     Indication: Prophylaxis
     Route: 042
     Dates: start: 20230209, end: 20230209
  38. BAKFOSE [Concomitant]
     Route: 042
     Dates: start: 20230210, end: 20230212
  39. OCTREOTIDE [Concomitant]
     Active Substance: OCTREOTIDE
     Route: 058
     Dates: start: 20230209, end: 20230209
  40. OCTREOTIDE [Concomitant]
     Active Substance: OCTREOTIDE
     Route: 058
     Dates: start: 20230210, end: 20230212
  41. CALCIUM CHLORIDE\POTASSIUM CHLORIDE\SODIUM ACETATE\SODIUM CHLORIDE [Concomitant]
     Active Substance: CALCIUM CHLORIDE\POTASSIUM CHLORIDE\SODIUM ACETATE\SODIUM CHLORIDE
     Route: 042
     Dates: start: 20230210, end: 20230211
  42. SULFAMETHOXAZOLE\TRIMETHOPRIM [Concomitant]
     Active Substance: SULFAMETHOXAZOLE\TRIMETHOPRIM
     Route: 048
     Dates: start: 20230210, end: 20230213
  43. MAGNESIUM OXIDE [Concomitant]
     Active Substance: MAGNESIUM OXIDE
     Indication: Constipation
     Route: 048
     Dates: start: 20230211
  44. SULFAMETHOXAZOLE\TRIMETHOPRIM [Concomitant]
     Active Substance: SULFAMETHOXAZOLE\TRIMETHOPRIM
     Indication: Prophylaxis
     Route: 048
     Dates: start: 20230214

REACTIONS (1)
  - Pancreatitis acute [Recovered/Resolved]

NARRATIVE: CASE EVENT DATE: 20230207
